FAERS Safety Report 21915481 (Version 1)
Quarter: 2023Q1

REPORT INFORMATION
  Report Type: Spontaneous
  Country: US (occurrence: None)
  Receive Date: 20230125
  Receipt Date: 20230125
  Transmission Date: 20230418
  Serious: Yes (Hospitalization)
  Sender: FDA-Public Use
  Company Number: None

PATIENT
  Sex: Female

DRUGS (1)
  1. ADAKVEO [Suspect]
     Active Substance: CRIZANLIZUMAB-TMCA
     Indication: Sickle cell disease
     Dosage: 252MG EVERY 4 WEEKS IV?
     Route: 042
     Dates: start: 202208

REACTIONS (3)
  - Musculoskeletal disorder [None]
  - Oxygen saturation decreased [None]
  - Pain [None]
